FAERS Safety Report 14803117 (Version 1)
Quarter: 2018Q2

REPORT INFORMATION
  Report Type: Spontaneous
  Country: KZ (occurrence: KZ)
  Receive Date: 20180425
  Receipt Date: 20180425
  Transmission Date: 20180711
  Serious: Yes (Death, Other)
  Sender: FDA-Public Use
  Company Number: KZ-GBPHLPEH-2018-PEL-003408

PATIENT

DRUGS (3)
  1. SUCCINYLCHOLINE CHLORIDE. [Concomitant]
     Active Substance: SUCCINYLCHOLINE CHLORIDE
     Indication: HYPOTONIA
  2. SUCCINYLCHOLINE CHLORIDE. [Concomitant]
     Active Substance: SUCCINYLCHOLINE CHLORIDE
     Indication: GENERAL ANAESTHESIA
     Dosage: 2 MG/KG, UNK
  3. ISOFLURANE. [Suspect]
     Active Substance: ISOFLURANE
     Dosage: UNK
     Dates: start: 20180226, end: 20180226

REACTIONS (2)
  - Death [Fatal]
  - Hyperthermia malignant [Unknown]
